FAERS Safety Report 10213404 (Version 1)
Quarter: 2014Q2

REPORT INFORMATION
  Report Type: Spontaneous
  Country: US (occurrence: None)
  Receive Date: 20140530
  Receipt Date: 20140530
  Transmission Date: 20141212
  Serious: Yes (Hospitalization)
  Sender: FDA-Public Use
  Company Number: None

PATIENT
  Age: 69 Year
  Sex: Male
  Weight: 86.8 kg

DRUGS (2)
  1. PANTOPRAZOLE [Suspect]
     Indication: HYPERTENSION
     Route: 048
     Dates: start: 20140509, end: 20140522
  2. LISINOPRIL [Suspect]
     Indication: DRUG THERAPY
     Route: 048
     Dates: start: 20140206, end: 20140521

REACTIONS (1)
  - Angioedema [None]
